FAERS Safety Report 7805159-1 (Version None)
Quarter: 2011Q4

REPORT INFORMATION
  Report Type: 
  Country: None (occurrence: None)
  Receive Date: 20111010
  Receipt Date: 20111007
  Transmission Date: 20120403
  Serious: Yes (Hospitalization)
  Sender: FDA-Public Use
  Company Number: US-SHIRE-ALL1-2011-03804

PATIENT
  Sex: Female
  Weight: 68.027 kg

DRUGS (7)
  1. LIALDA [Suspect]
     Indication: COLITIS ULCERATIVE
     Dosage: 4.8 G, 1X/DAY:QD
     Route: 048
  2. LEVOXYL [Concomitant]
     Indication: THYROID DISORDER
     Dosage: 1 MG, 1X/DAY:QD
     Route: 048
  3. NEXIUM [Concomitant]
     Indication: DYSPEPSIA
     Dosage: 40 MG, 1X/DAY:QD
     Route: 048
  4. ZOCOR [Concomitant]
     Indication: BLOOD CHOLESTEROL INCREASED
     Dosage: 20 MG, 1X/DAY:QD
     Route: 048
  5. COSOPT [Concomitant]
     Indication: GLAUCOMA
     Dosage: UNK, 1X/DAY:QD
     Route: 031
     Dates: start: 20060101
  6. IMURAN [Concomitant]
     Indication: COLITIS
     Dosage: 100 MG (TWO 50 MG TABTS), 1X/DAY:QD
     Route: 048
  7. ENALAPRIL MALEATE [Concomitant]
     Indication: HYPERTENSION
     Dosage: 10 MG, 2X/DAY:BID
     Route: 048

REACTIONS (3)
  - HEADACHE [None]
  - NAUSEA [None]
  - CEREBRAL HAEMORRHAGE [None]
